FAERS Safety Report 7366448-0 (Version None)
Quarter: 2011Q1

REPORT INFORMATION
  Report Type: 
  Country: None (occurrence: None)
  Receive Date: 20110322
  Receipt Date: 20110308
  Transmission Date: 20110831
  Serious: Yes (Hospitalization)
  Sender: FDA-Public Use
  Company Number: US-JNJFOC-20100705527

PATIENT
  Sex: Male
  Weight: 60.1 kg

DRUGS (8)
  1. INFLIXIMAB, RECOMBINANT [Suspect]
     Indication: INFLAMMATORY BOWEL DISEASE
     Dosage: TOTAL 26 DOSES
     Route: 042
  2. INFLIXIMAB, RECOMBINANT [Suspect]
     Indication: ANORECTAL DISORDER
     Dosage: TOTAL 26 DOSES
     Route: 042
  3. INFLIXIMAB, RECOMBINANT [Suspect]
     Route: 042
  4. METHOTREXATE [Concomitant]
  5. METRONIDAZOLE [Concomitant]
  6. CIPRO [Concomitant]
  7. INFLIXIMAB, RECOMBINANT [Suspect]
     Route: 042
  8. MESALAMINE [Concomitant]

REACTIONS (2)
  - PERIRECTAL ABSCESS [None]
  - ANAL FISTULA [None]
